FAERS Safety Report 8290704-5 (Version None)
Quarter: 2012Q2

REPORT INFORMATION
  Report Type: 
  Country: None (occurrence: None)
  Receive Date: 20120417
  Receipt Date: 20110801
  Transmission Date: 20120825
  Serious: No
  Sender: FDA-Public Use
  Company Number: US-ASTRAZENECA-2011SE46091

PATIENT
  Age: 52 Year
  Sex: Female

DRUGS (2)
  1. NEXIUM [Suspect]
     Route: 048
  2. TOPROL-XL [Suspect]
     Route: 048

REACTIONS (5)
  - UPPER RESPIRATORY TRACT INFECTION [None]
  - BRONCHITIS [None]
  - GASTROENTERITIS VIRAL [None]
  - GINGIVAL PAIN [None]
  - TOOTHACHE [None]
